FAERS Safety Report 7630002-3 (Version None)
Quarter: 2011Q3

REPORT INFORMATION
  Report Type: 
  Country: None (occurrence: None)
  Receive Date: 20110715
  Receipt Date: 20110506
  Transmission Date: 20111222
  Serious: Yes (Other)
  Sender: FDA-Public Use
  Company Number: 2011-166

PATIENT
  Age: 46 Year
  Sex: Female
  Weight: 60 kg

DRUGS (4)
  1. MORPHINE SULFATE [Suspect]
     Indication: PAIN
     Dosage: 0.3 MG, ONCE/HOUR, INTRATHECAL
     Route: 037
  2. PRIALT [Suspect]
     Indication: PAIN
     Dosage: 0.08 UG, ONCE/HOUR, INTRATHECAL
     Route: 037
     Dates: start: 20110218, end: 20110405
  3. NAROPIN [Suspect]
     Indication: PAIN
     Dosage: 0.75 MG, ONCE/HOUR, INTRATHECAL
     Route: 037
  4. CLONIDINE HCL [Suspect]
     Indication: PAIN
     Dosage: 0.5 MG, ONCE/HOUR, INTRATHECAL
     Route: 037

REACTIONS (4)
  - APHASIA [None]
  - ABNORMAL BEHAVIOUR [None]
  - NIGHTMARE [None]
  - CONFUSIONAL STATE [None]
